FAERS Safety Report 12796309 (Version 4)
Quarter: 2018Q1

REPORT INFORMATION
  Report Type: Report from Study
  Country: US (occurrence: US)
  Receive Date: 20160929
  Receipt Date: 20180305
  Transmission Date: 20180508
  Serious: No
  Sender: FDA-Public Use
  Company Number: US-INCYTE CORPORATION-2015IN006712

PATIENT

DRUGS (33)
  1. JAKAFI [Suspect]
     Active Substance: RUXOLITINIB
     Dosage: 10 MG TABLETS (500 MG, (TUES, THURS, SAT, SUN) AND 500 MG BID (MON, WED, FRI)
     Route: 048
     Dates: start: 20160311, end: 20160602
  2. JAKAFI [Suspect]
     Active Substance: RUXOLITINIB
     Dosage: 10 MG, QD
     Route: 048
     Dates: start: 20160701, end: 20160908
  3. JAKAFI [Suspect]
     Active Substance: RUXOLITINIB
     Dosage: 10 MG QD
     Route: 048
     Dates: start: 20160106, end: 20160218
  4. JAKAFI [Suspect]
     Active Substance: RUXOLITINIB
     Dosage: 10 MG BID
     Route: 048
     Dates: start: 20170526
  5. ULTRAM [Concomitant]
     Active Substance: TRAMADOL HYDROCHLORIDE
     Indication: PAIN
     Dosage: 50 MG, BID
     Dates: start: 20170404
  6. LATANOPROST. [Concomitant]
     Active Substance: LATANOPROST
     Indication: GLAUCOMA
     Dosage: 1 DROP, QD
     Dates: start: 20170309
  7. COUMADIN [Concomitant]
     Active Substance: WARFARIN SODIUM
     Dosage: 7.5 MG, 2 TIMES PER WEEEK
     Dates: start: 20170525
  8. JAKAFI [Suspect]
     Active Substance: RUXOLITINIB
     Dosage: 5 MG BID ON (MWF)
     Route: 048
     Dates: start: 20160311, end: 20160602
  9. POTASSIUM CHLORIDE. [Concomitant]
     Active Substance: POTASSIUM CHLORIDE
     Indication: BLOOD POTASSIUM DECREASED
     Dosage: 10 MEQ, QD
     Dates: start: 20131216
  10. COUMADIN [Concomitant]
     Active Substance: WARFARIN SODIUM
     Dosage: 5 MG, 5 DAYS A WEEK
     Dates: start: 20170525
  11. JAKAFI [Suspect]
     Active Substance: RUXOLITINIB
     Dosage: 10 TABLET MG, QD AND 10 MG 4X WEEK)
     Route: 048
     Dates: start: 20160603, end: 20160630
  12. ATENOLOL. [Concomitant]
     Active Substance: ATENOLOL
     Indication: HYPERTENSION
     Dosage: 50 MG, QD
     Dates: start: 20150319
  13. HYDREA [Concomitant]
     Active Substance: HYDROXYUREA
     Indication: POLYCYTHAEMIA VERA
     Dosage: 500 MG, QOD
     Dates: start: 20150216, end: 20150417
  14. HYDREA [Concomitant]
     Active Substance: HYDROXYUREA
     Dosage: 500 MG, QD
     Dates: start: 20160407, end: 20160420
  15. LIPITOR [Concomitant]
     Active Substance: ATORVASTATIN CALCIUM
     Indication: HYPERLIPIDAEMIA
     Dosage: 20 MG, 3-4 TIMES WEEKLY
     Dates: start: 20130617
  16. TENORMIN [Concomitant]
     Active Substance: ATENOLOL
     Indication: CHEST PAIN
  17. ATENOLOL. [Concomitant]
     Active Substance: ATENOLOL
     Indication: CHEST PAIN
  18. BENICAR [Concomitant]
     Active Substance: OLMESARTAN MEDOXOMIL
     Indication: HYPERTENSION
     Dosage: 40/25 MG, QD
     Dates: start: 20131028, end: 20170308
  19. HYDREA [Concomitant]
     Active Substance: HYDROXYUREA
     Dosage: 500 MG, 6 DAYS PER WEEK
     Dates: start: 20150418, end: 20150617
  20. JAKAFI [Suspect]
     Active Substance: RUXOLITINIB
     Dosage: 10 MG BID FIVE DAYS A WEEK
     Route: 048
     Dates: start: 20160701, end: 20160908
  21. JAKAFI [Suspect]
     Active Substance: RUXOLITINIB
     Dosage: 10 MG BID (THREE DAYS A WEEK MWF)
     Route: 048
     Dates: start: 20160219, end: 20160310
  22. ASA [Concomitant]
     Active Substance: ASPIRIN
     Dosage: 81 MG
     Dates: start: 20170326
  23. JAKAFI [Suspect]
     Active Substance: RUXOLITINIB
     Indication: POLYCYTHAEMIA VERA
     Dosage: 10 MG, BID
     Route: 048
     Dates: start: 20150618, end: 20151203
  24. JAKAFI [Suspect]
     Active Substance: RUXOLITINIB
     Dosage: 10 MG, QD
     Route: 048
     Dates: start: 20151204, end: 20160310
  25. JAKAFI [Suspect]
     Active Substance: RUXOLITINIB
     Dosage: 10 MG, BID 6 DAYS PER WEEK
     Dates: start: 20170105, end: 20170308
  26. JAKAFI [Suspect]
     Active Substance: RUXOLITINIB
     Dosage: 5 MG DAILY (TUESDAY, THURSDAY, SATURDAY AND SUNDAY)
     Route: 048
     Dates: start: 20160311, end: 20160602
  27. ASA [Concomitant]
     Active Substance: ASPIRIN
     Dosage: 325 MG  QD
     Dates: start: 20160107, end: 20170325
  28. TENORMIN [Concomitant]
     Active Substance: ATENOLOL
     Indication: HYPERTENSION
     Dosage: 25 MG, QD
     Dates: start: 20130617, end: 20150318
  29. TIMOPTIC [Concomitant]
     Active Substance: TIMOLOL MALEATE
     Indication: GLAUCOMA
     Dosage: 1 DROP, QD
     Dates: start: 20130617, end: 20170318
  30. HYZAAR [Concomitant]
     Active Substance: HYDROCHLOROTHIAZIDE\LOSARTAN POTASSIUM
     Indication: HYPERTENSION
     Dosage: 100-25 MG, QD
     Dates: start: 20170308
  31. COUMADIN [Concomitant]
     Active Substance: WARFARIN SODIUM
     Indication: ANTICOAGULANT THERAPY
     Dosage: 3 MG, QD
     Dates: start: 20170321, end: 20170525
  32. ASA [Concomitant]
     Active Substance: ASPIRIN
     Indication: POLYCYTHAEMIA VERA
     Dosage: 81 MG, QD
     Dates: start: 20131216, end: 20160106
  33. SYNTHROID [Concomitant]
     Active Substance: LEVOTHYROXINE SODIUM
     Indication: HYPOTHYROIDISM
     Dosage: 25 MCG, QD
     Dates: start: 20160310

REACTIONS (17)
  - Nausea [Recovered/Resolved]
  - Constipation [Recovered/Resolved]
  - Anaemia [Not Recovered/Not Resolved]
  - Tooth infection [Recovered/Resolved]
  - Nausea [Recovered/Resolved]
  - Headache [Not Recovered/Not Resolved]
  - Alopecia [Recovered/Resolved]
  - Cough [Recovered/Resolved]
  - Haematocrit increased [Recovered/Resolved]
  - Dizziness [Recovered/Resolved]
  - Nausea [Recovered/Resolved]
  - Cough [Not Recovered/Not Resolved]
  - Haematocrit increased [Recovered/Resolved]
  - Night sweats [Recovered/Resolved]
  - Oedema peripheral [Unknown]
  - Haematocrit increased [Recovered/Resolved]
  - Dyspnoea exertional [Not Recovered/Not Resolved]

NARRATIVE: CASE EVENT DATE: 20151130
